FAERS Safety Report 5192007-4 (Version None)
Quarter: 2006Q4

REPORT INFORMATION
  Report Type: 
  Country: None (occurrence: None)
  Receive Date: 20061220
  Receipt Date: 20061220
  Transmission Date: 20070319
  Serious: Yes (Hospitalization)
  Sender: FDA-Public Use
  Company Number: None

PATIENT
  Sex: Female
  Weight: 101 kg

DRUGS (7)
  1. ESCITALOPRAM OXALATE [Suspect]
     Indication: DEPRESSION
     Dosage: 20MG DAILY PO
     Route: 048
     Dates: start: 20060401
  2. NORTRIPTYLINE HCL [Suspect]
     Indication: DEPRESSION
     Dosage: 10 MG DAILY PO
     Route: 048
     Dates: start: 20060817, end: 20060822
  3. FENTANYL TRANSDERMAL SYSTEM [Concomitant]
  4. ALBUTEROL [Concomitant]
  5. FLOVENT [Concomitant]
  6. BIRTH CONTROL PILLS [Concomitant]
  7. XANAX [Concomitant]

REACTIONS (4)
  - AGITATION [None]
  - MUSCLE SPASMS [None]
  - SEROTONIN SYNDROME [None]
  - TREMOR [None]
